FAERS Safety Report 4404324-3 (Version None)
Quarter: 2004Q3

REPORT INFORMATION
  Report Type: 
  Country: None (occurrence: None)
  Receive Date: 20040721
  Receipt Date: 20040721
  Transmission Date: 20050211
  Serious: Yes (Other)
  Sender: FDA-Public Use
  Company Number: None

PATIENT
  Age: 52 Year
  Sex: Female
  Weight: 142.8831 kg

DRUGS (2)
  1. IRBESARTAN 150 MG [Suspect]
     Indication: HYPERTENSION
     Dosage: 1/2 TAB Q AM
     Dates: start: 20040109, end: 20040223
  2. IRBESARTAN 150 MG [Suspect]
     Indication: NEPHROPATHY
     Dosage: 1/2 TAB Q AM
     Dates: start: 20040109, end: 20040223

REACTIONS (1)
  - RASH PRURITIC [None]
